FAERS Safety Report 15986092 (Version 1)
Quarter: 2019Q1

REPORT INFORMATION
  Report Type: Spontaneous
  Country: US (occurrence: US)
  Receive Date: 20190125
  Receipt Date: 20190125
  Transmission Date: 20190418
  Serious: Yes (Hospitalization)
  Sender: FDA-Public Use
  Company Number: None

PATIENT
  Age: 54 Year
  Sex: Female

DRUGS (5)
  1. RYDAPT [Suspect]
     Active Substance: MIDOSTAURIN
     Indication: ACUTE MYELOID LEUKAEMIA
     Dosage: OTHER FREQUENCY:BID/DAYS 8-21/28;?
     Route: 048
     Dates: start: 20181016
  2. RYDAPT [Suspect]
     Active Substance: MIDOSTAURIN
     Indication: ACUTE MYELOID LEUKAEMIA
  3. TACROLIMUS. [Concomitant]
     Active Substance: TACROLIMUS
  4. PREVYMIS [Concomitant]
     Active Substance: LETERMOVIR
  5. RYDAPT [Suspect]
     Active Substance: MIDOSTAURIN
     Indication: BONE MARROW TRANSPLANT
     Dosage: OTHER FREQUENCY:BID/DAYS 8-21/28;?
     Route: 048
     Dates: start: 20181016

REACTIONS (1)
  - Therapy cessation [None]

NARRATIVE: CASE EVENT DATE: 20190124
